FAERS Safety Report 17552660 (Version 5)
Quarter: 2021Q1

REPORT INFORMATION
  Report Type: Spontaneous
  Country: US (occurrence: US)
  Receive Date: 20200317
  Receipt Date: 20210218
  Transmission Date: 20210419
  Serious: No
  Sender: FDA-Public Use
  Company Number: US-PFIZER INC-2020113202

PATIENT
  Age: 72 Year
  Sex: Female

DRUGS (2)
  1. XELJANZ XR [Suspect]
     Active Substance: TOFACITINIB CITRATE
     Dosage: 11 MG
  2. MODERNA COVID?19 VACCINE [Concomitant]
     Active Substance: CX-024414
     Dosage: UNK

REACTIONS (1)
  - Cardiac disorder [Unknown]
